FAERS Safety Report 10359156 (Version 5)
Quarter: 2016Q2

REPORT INFORMATION
  Report Type: Report from Study
  Country: BR (occurrence: BR)
  Receive Date: 20140804
  Receipt Date: 20160616
  Transmission Date: 20160815
  Serious: Yes (Hospitalization, Other)
  Sender: FDA-Public Use
  Company Number: PHHY2014BR092278

PATIENT
  Age: 62 Year
  Sex: Female
  Weight: 52 kg

DRUGS (7)
  1. SANDOSTATIN LAR DEPOT [Suspect]
     Active Substance: OCTREOTIDE ACETATE
     Indication: NEUROENDOCRINE TUMOUR
     Dosage: 20 MG, QMO, EVERY 28 DAYS
     Route: 030
     Dates: start: 2011
  2. HIDANTAL [Concomitant]
     Active Substance: PHENYTOIN SODIUM
     Indication: PRODUCT USED FOR UNKNOWN INDICATION
     Dosage: 1 DF, QD
     Route: 065
     Dates: start: 2013
  3. DECADRON [Concomitant]
     Active Substance: DEXAMETHASONE
     Indication: SEIZURE
     Dosage: 2 DF, QD (1 TABLET AT 07:15 AM AND 1 TABLET AT 7 PM)
     Route: 065
     Dates: start: 2013
  4. CRESTOR [Concomitant]
     Active Substance: ROSUVASTATIN CALCIUM
     Indication: BLOOD TRIGLYCERIDES ABNORMAL
     Route: 065
  5. CARVEDILOL. [Concomitant]
     Active Substance: CARVEDILOL
     Indication: CARDIAC DISORDER
     Dosage: 2 DF, QD (1 TABLET AT 8 AM AND 1 TABLET AT 8 PM)
     Route: 065
     Dates: start: 2013
  6. RIVOTRIL [Concomitant]
     Active Substance: CLONAZEPAM
     Indication: SLEEP DISORDER
  7. RIVOTRIL [Concomitant]
     Active Substance: CLONAZEPAM
     Indication: ANXIETY
     Dosage: 1 DF, QD (AT 08:40 PM)
     Route: 065
     Dates: start: 2013

REACTIONS (27)
  - Abdominal adhesions [Unknown]
  - Face injury [Recovering/Resolving]
  - Fall [Unknown]
  - Cardiomegaly [Not Recovered/Not Resolved]
  - Metastases to central nervous system [Unknown]
  - Weight increased [Unknown]
  - Malaise [Unknown]
  - Chordae tendinae rupture [Not Recovered/Not Resolved]
  - Diabetes mellitus [Unknown]
  - Memory impairment [Not Recovered/Not Resolved]
  - Seizure [Recovered/Resolved]
  - Hypoaesthesia [Unknown]
  - Gastrointestinal carcinoma [Unknown]
  - Hypertrichosis [Unknown]
  - Visual impairment [Unknown]
  - Feeding disorder [Recovered/Resolved]
  - Abdominal hernia [Unknown]
  - Skin irritation [Unknown]
  - Alopecia [Recovered/Resolved]
  - Nausea [Recovered/Resolved]
  - Weight decreased [Recovered/Resolved]
  - Inflammation [Unknown]
  - Malignant neoplasm progression [Recovered/Resolved]
  - Fear of falling [Recovering/Resolving]
  - Limb discomfort [Not Recovered/Not Resolved]
  - Cardiac disorder [Unknown]
  - Concomitant disease aggravated [Unknown]

NARRATIVE: CASE EVENT DATE: 201108
